FAERS Safety Report 4749364-X (Version None)
Quarter: 2005Q3

REPORT INFORMATION
  Report Type: 
  Country: None (occurrence: None)
  Receive Date: 20050819
  Receipt Date: 20050713
  Transmission Date: 20060218
  Serious: Yes (Hospitalization, Other)
  Sender: FDA-Public Use
  Company Number: US-MERCK-0507USA01930

PATIENT
  Age: 71 Year
  Sex: Female
  Weight: 64 kg

DRUGS (2)
  1. VIOXX [Suspect]
     Indication: ARTHRITIS
     Route: 048
     Dates: start: 20030501, end: 20030101
  2. VIOXX [Suspect]
     Route: 048
     Dates: start: 20040601, end: 20041001

REACTIONS (4)
  - CHEST PAIN [None]
  - MYOCARDIAL INFARCTION [None]
  - OBSTRUCTION [None]
  - RENAL PAIN [None]
